FAERS Safety Report 9526062 (Version 1)
Quarter: 2013Q3

REPORT INFORMATION
  Report Type: Spontaneous
  Country: US (occurrence: US)
  Receive Date: 20130916
  Receipt Date: 20130916
  Transmission Date: 20140515
  Serious: Yes (Other)
  Sender: FDA-Public Use
  Company Number: US-AMGEN-USASP2013063415

PATIENT
  Sex: Female

DRUGS (1)
  1. PROLIA [Suspect]
     Indication: OSTEOPOROSIS POSTMENOPAUSAL
     Dosage: UNK
     Route: 065
     Dates: start: 2010

REACTIONS (6)
  - Bedridden [Unknown]
  - Clostridium difficile infection [Unknown]
  - Blood phosphorus increased [Unknown]
  - Hypercalcaemia [Unknown]
  - Blood parathyroid hormone abnormal [Unknown]
  - Hypocalcaemia [Unknown]
